FAERS Safety Report 6674004-2 (Version None)
Quarter: 2010Q2

REPORT INFORMATION
  Report Type: 
  Country: None (occurrence: None)
  Receive Date: 20100409
  Receipt Date: 20091218
  Transmission Date: 20101027
  Serious: Yes (Disabling)
  Sender: FDA-Public Use
  Company Number: US-JNJFOC-20081201811

PATIENT
  Sex: Male

DRUGS (2)
  1. LEVAQUIN [Suspect]
     Indication: SINUSITIS
     Route: 048
  2. PATANASE [Concomitant]
     Route: 065

REACTIONS (13)
  - ABASIA [None]
  - ARTHRALGIA [None]
  - ASTHENIA [None]
  - BEDRIDDEN [None]
  - DYSSTASIA [None]
  - GUILLAIN-BARRE SYNDROME [None]
  - MYOSITIS [None]
  - OFF LABEL USE [None]
  - PAIN [None]
  - PAIN IN EXTREMITY [None]
  - TENDON PAIN [None]
  - VITAMIN D DEFICIENCY [None]
  - WHEELCHAIR USER [None]
